FAERS Safety Report 22933412 (Version 6)
Quarter: 2025Q4

REPORT INFORMATION
  Report Type: Report from Study
  Country: US (occurrence: US)
  Receive Date: 20230912
  Receipt Date: 20251204
  Transmission Date: 20260117
  Serious: Yes (Hospitalization, Other)
  Sender: TAKEDA
  Company Number: US-TAKEDA-2021TUS050296

PATIENT
  Age: 69 Year
  Sex: Female
  Weight: 122.9 kg

DRUGS (11)
  1. LANADELUMAB [Suspect]
     Active Substance: LANADELUMAB
     Indication: Hereditary angioedema
     Dosage: UNK UNK, Q4WEEKS
     Dates: start: 201911
  2. LANADELUMAB [Suspect]
     Active Substance: LANADELUMAB
     Indication: Immune system disorder
     Dosage: 2 MILLILITER, Q2WEEKS
     Dates: start: 20201104
  3. LANADELUMAB [Suspect]
     Active Substance: LANADELUMAB
     Dosage: 300 MILLIGRAM, Q2WEEKS
     Dates: start: 202011
  4. LANADELUMAB [Suspect]
     Active Substance: LANADELUMAB
     Dosage: 300 MILLIGRAM, Q4WEEKS
  5. GLIMEPIRIDE [Concomitant]
     Active Substance: GLIMEPIRIDE
     Indication: Diabetes mellitus
     Dosage: 2 MILLIGRAM, QD
     Dates: start: 2014
  6. CARVEDILOL [Concomitant]
     Active Substance: CARVEDILOL
     Indication: Hypertension
     Dosage: 3.125 MILLIGRAM, BID
     Dates: start: 2015
  7. DULOXETINE [Concomitant]
     Active Substance: DULOXETINE
     Indication: Arthralgia
     Dosage: UNK
  8. OXYCODONE [Concomitant]
     Active Substance: OXYCODONE
     Indication: Arthralgia
     Dosage: UNK
  9. VITAMIN D [Concomitant]
     Active Substance: VITAMIN D NOS
     Dosage: 5000 MILLIGRAM, QD
     Dates: start: 2019
  10. TAMOXIFEN [Concomitant]
     Active Substance: TAMOXIFEN
     Dosage: 20 MILLIGRAM, QD
  11. ICATIBANT [Concomitant]
     Active Substance: ICATIBANT ACETATE
     Indication: Hereditary angioedema
     Dosage: 30 MILLIGRAM

REACTIONS (5)
  - Cholelithiasis [Unknown]
  - Nephrolithiasis [Recovered/Resolved]
  - Weight decreased [Recovered/Resolved]
  - Injection site erythema [Unknown]
  - Injection site bruising [Unknown]

NARRATIVE: CASE EVENT DATE: 20230901
